FAERS Safety Report 6052770-7 (Version None)
Quarter: 2009Q1

REPORT INFORMATION
  Report Type: 
  Country: None (occurrence: None)
  Receive Date: 20090127
  Receipt Date: 20090121
  Transmission Date: 20090719
  Serious: Yes (Hospitalization, Other)
  Sender: FDA-Public Use
  Company Number: DE-BAYER-200833253GPV

PATIENT
  Age: 53 Year
  Sex: Male

DRUGS (1)
  1. SORAFENIB [Suspect]
     Indication: RENAL CELL CARCINOMA
     Dosage: TOTAL DAILY DOSE: 1200 MG
     Route: 048
     Dates: start: 20081020, end: 20090111

REACTIONS (2)
  - METASTASES TO LUNG [None]
  - PULMONARY EMBOLISM [None]
